FAERS Safety Report 19514150 (Version 2)
Quarter: 2021Q3

REPORT INFORMATION
  Report Type: Report from Study
  Country: GR (occurrence: GR)
  Receive Date: 20210709
  Receipt Date: 20210824
  Transmission Date: 20211014
  Serious: Yes (Hospitalization, Other)
  Sender: FDA-Public Use
  Company Number: GR-MYLANLABS-2021M1040189

PATIENT
  Age: 44 Year
  Sex: Male

DRUGS (4)
  1. CLIFT (GLATIRAMER ACETATE) [Suspect]
     Active Substance: GLATIRAMER ACETATE
     Indication: MULTIPLE SCLEROSIS
     Dosage: 40 MILLIGRAM, 3XW
     Route: 058
     Dates: start: 20210308
  2. MIOREL                             /00252601/ [Concomitant]
     Active Substance: BACLOFEN
     Dosage: UNK
  3. ZINADOL [Concomitant]
     Active Substance: CEFUROXIME AXETIL
     Dosage: UNK
  4. KEPPRA [Concomitant]
     Active Substance: LEVETIRACETAM
     Dosage: UNK

REACTIONS (2)
  - Pyrexia [Recovering/Resolving]
  - Epilepsy [Recovering/Resolving]
